FAERS Safety Report 12313758 (Version 1)
Quarter: 2016Q2

REPORT INFORMATION
  Report Type: Spontaneous
  Country: US (occurrence: US)
  Receive Date: 20160428
  Receipt Date: 20160428
  Transmission Date: 20160815
  Serious: No
  Sender: FDA-Public Use
  Company Number: US-BAUSCH-BL-2015-027367

PATIENT
  Age: 50 Year
  Sex: Female

DRUGS (1)
  1. ZYCLARA [Suspect]
     Active Substance: IMIQUIMOD
     Indication: LIP DISORDER
     Route: 065

REACTIONS (5)
  - Mouth ulceration [Unknown]
  - Pain [Unknown]
  - Arthralgia [Unknown]
  - Influenza like illness [Unknown]
  - Pyrexia [Unknown]
